FAERS Safety Report 24838573 (Version 2)
Quarter: 2025Q3

REPORT INFORMATION
  Report Type: Spontaneous
  Country: EU (occurrence: EU)
  Receive Date: 20250113
  Receipt Date: 20250810
  Transmission Date: 20251021
  Serious: Yes (Life-Threatening, Other)
  Sender: ALEXION PHARMACEUTICALS
  Company Number: EU-CHEPLA-2025000166

PATIENT
  Age: 38 Year
  Sex: Male
  Weight: 82 kg

DRUGS (15)
  1. QUETIAPINE [Suspect]
     Active Substance: QUETIAPINE
     Indication: Psychotic disorder
     Dosage: 200 MILLIGRAM, QD
     Dates: start: 19950101
  2. QUETIAPINE [Suspect]
     Active Substance: QUETIAPINE
  3. OLANZAPINE [Suspect]
     Active Substance: OLANZAPINE
     Route: 065
  4. ENALAPRIL [Suspect]
     Active Substance: ENALAPRIL
     Indication: Hypertension
     Dosage: 5 MILLIGRAM, QD
     Dates: start: 20221001, end: 20241113
  5. CARIPRAZINE [Suspect]
     Active Substance: CARIPRAZINE
     Indication: Psychotic disorder
     Dosage: 13.50 MILLIGRAM, Q8H
     Dates: start: 20220901
  6. LITHIUM CARBONATE [Suspect]
     Active Substance: LITHIUM CARBONATE
     Indication: Affective disorder
     Dosage: 400 MILLIGRAM, QD
     Dates: start: 20150201
  7. NEXIUM [Suspect]
     Active Substance: ESOMEPRAZOLE MAGNESIUM
     Indication: Dyspepsia
  8. HALOPERIDOL [Concomitant]
     Active Substance: HALOPERIDOL
     Indication: Product used for unknown indication
  9. HALOPERIDOL [Concomitant]
     Active Substance: HALOPERIDOL
     Route: 065
  10. AKINETON [Concomitant]
     Active Substance: BIPERIDEN HYDROCHLORIDE
  11. AKINETON [Concomitant]
     Active Substance: BIPERIDEN HYDROCHLORIDE
     Route: 065
  12. PERAZINE [Concomitant]
     Active Substance: PERAZINE
  13. BIPERIDEN [Concomitant]
     Active Substance: BIPERIDEN
  14. PROMETHAZINE [Concomitant]
     Active Substance: PROMETHAZINE HYDROCHLORIDE
  15. UNSPECIFIED INGREDIENT [Concomitant]
     Active Substance: UNSPECIFIED INGREDIENT

REACTIONS (27)
  - Petit mal epilepsy [Unknown]
  - Epilepsy [Unknown]
  - Coordination abnormal [Recovered/Resolved]
  - Slow response to stimuli [Recovered/Resolved]
  - Incontinence [Recovering/Resolving]
  - Tinnitus [Recovering/Resolving]
  - Constipation [Recovering/Resolving]
  - Oedema peripheral [Recovering/Resolving]
  - Balance disorder [Recovered/Resolved]
  - Fatigue [Not Recovered/Not Resolved]
  - Vision blurred [Recovering/Resolving]
  - Muscle spasms [Recovering/Resolving]
  - Mood altered [Recovering/Resolving]
  - Paraesthesia [Recovering/Resolving]
  - Dry mouth [Recovering/Resolving]
  - Alopecia [Not Recovered/Not Resolved]
  - Abdominal distension [Not Recovered/Not Resolved]
  - Erectile dysfunction [Recovering/Resolving]
  - Polyneuropathy [Not Recovered/Not Resolved]
  - Renal disorder [Not Recovered/Not Resolved]
  - Dyspnoea [Recovering/Resolving]
  - Malaise [Recovering/Resolving]
  - Anxiety [Recovering/Resolving]
  - Depressed mood [Recovering/Resolving]
  - Insomnia [Recovering/Resolving]
  - Weight increased [Unknown]
  - Vomiting [Unknown]
